FAERS Safety Report 5774905-3 (Version None)
Quarter: 2008Q2

REPORT INFORMATION
  Report Type: 
  Country: None (occurrence: None)
  Receive Date: 20080616
  Receipt Date: 20080616
  Transmission Date: 20081010
  Serious: Yes (Hospitalization)
  Sender: FDA-Public Use
  Company Number: None

PATIENT
  Sex: Female
  Weight: 47.27 kg

DRUGS (4)
  1. CISPLATIN [Suspect]
     Dosage: 37 MG
  2. ERBITUX [Suspect]
     Dosage: 368 MG
  3. LORTAB [Concomitant]
  4. OXYCONTIN [Concomitant]

REACTIONS (6)
  - BLOOD PRESSURE DIASTOLIC DECREASED [None]
  - CATHETER SITE DISCHARGE [None]
  - CEREBROVASCULAR ACCIDENT [None]
  - CHILLS [None]
  - PURULENCE [None]
  - PYELONEPHRITIS [None]
